FAERS Safety Report 20561360 (Version 1)
Quarter: 2022Q1

REPORT INFORMATION
  Report Type: Spontaneous
  Country: US (occurrence: None)
  Receive Date: 20220307
  Receipt Date: 20220307
  Transmission Date: 20220424
  Serious: Yes (Other)
  Sender: FDA-Public Use
  Company Number: None

PATIENT
  Age: 72 Year
  Sex: Female

DRUGS (1)
  1. CAPECITABINE [Suspect]
     Active Substance: CAPECITABINE
     Indication: Colon cancer
     Dosage: 1650 MG BID FOR 14 DA  BID  ORAL?
     Route: 048
     Dates: start: 202201

REACTIONS (3)
  - Diarrhoea [None]
  - Blood potassium decreased [None]
  - Liver function test abnormal [None]

NARRATIVE: CASE EVENT DATE: 20220225
